FAERS Safety Report 11859932 (Version 2)
Quarter: 2015Q4

REPORT INFORMATION
  Report Type: Report from Study
  Country: US (occurrence: US)
  Receive Date: 20151222
  Receipt Date: 20151228
  Transmission Date: 20160305
  Serious: No
  Sender: FDA-Public Use
  Company Number: PHEH2015US025810

PATIENT
  Sex: Male

DRUGS (1)
  1. COSENTYX [Suspect]
     Active Substance: SECUKINUMAB
     Indication: PSORIASIS
     Dosage: UNK UNK, QMO
     Route: 065
     Dates: start: 201508

REACTIONS (6)
  - Hot flush [Unknown]
  - Sinus headache [Unknown]
  - Nasal congestion [Unknown]
  - Dyspnoea [Unknown]
  - Hypertension [Unknown]
  - Drug effect incomplete [Unknown]
